FAERS Safety Report 7099757-3 (Version None)
Quarter: 2010Q4

REPORT INFORMATION
  Report Type: 
  Country: None (occurrence: None)
  Receive Date: 20101112
  Receipt Date: 20101101
  Transmission Date: 20110411
  Serious: Yes (Disabling, Other)
  Sender: FDA-Public Use
  Company Number: CN-MYLANLABS-2010S1020318

PATIENT
  Age: 51 Year
  Sex: Female
  Weight: 60 kg

DRUGS (2)
  1. CISPLATIN [Suspect]
     Indication: OVARIAN CANCER
     Dosage: ADMINISTERED ONCE A MONTH; 6 TIMES IN TOTAL
     Route: 042
     Dates: start: 20080301
  2. PACLITAXEL [Suspect]
     Indication: OVARIAN CANCER
     Dosage: ADMINISTERED ONCE A MONTH; 6 TIMES IN TOTAL
     Route: 042
     Dates: start: 20080301

REACTIONS (1)
  - BLINDNESS [None]
